FAERS Safety Report 18987469 (Version 1)
Quarter: 2021Q1

REPORT INFORMATION
  Report Type: Spontaneous
  Country: US (occurrence: US)
  Receive Date: 20210309
  Receipt Date: 20210309
  Transmission Date: 20210420
  Serious: Yes (Disabling)
  Sender: FDA-Public Use
  Company Number: None

PATIENT
  Age: 54 Year
  Sex: Female
  Weight: 114.75 kg

DRUGS (2)
  1. VENLAFAXINE HCL ER 37.5 MG CAP, EXTENDED RELEASE 24 HR [Suspect]
     Active Substance: VENLAFAXINE HYDROCHLORIDE
     Indication: HOT FLUSH
     Dosage: ?          QUANTITY:1 CAPSULE(S);?
     Route: 048
     Dates: start: 20201225, end: 20210108
  2. VENLAFAXINE HCL ER 37.5 MG CAP, EXTENDED RELEASE 24 HR [Suspect]
     Active Substance: VENLAFAXINE HYDROCHLORIDE
     Indication: ARTHRALGIA
     Dosage: ?          QUANTITY:1 CAPSULE(S);?
     Route: 048
     Dates: start: 20201225, end: 20210108

REACTIONS (4)
  - Hypertension [None]
  - Migraine [None]
  - Tinnitus [None]
  - Vision blurred [None]

NARRATIVE: CASE EVENT DATE: 20210115
